FAERS Safety Report 6816545-0 (Version None)
Quarter: 2010Q3

REPORT INFORMATION
  Report Type: 
  Country: None (occurrence: None)
  Receive Date: 20100706
  Receipt Date: 20100623
  Transmission Date: 20110219
  Serious: No
  Sender: FDA-Public Use
  Company Number: PHHY2010DE27514

PATIENT
  Age: 46 Year
  Weight: 70 kg

DRUGS (1)
  1. TASIGNA [Suspect]
     Indication: CHRONIC MYELOID LEUKAEMIA
     Dosage: 800 MG, DAILY
     Route: 048
     Dates: start: 20100419

REACTIONS (3)
  - ELECTROCARDIOGRAM QT PROLONGED [None]
  - FATIGUE [None]
  - PALPITATIONS [None]
